FAERS Safety Report 24135117 (Version 1)
Quarter: 2024Q3

REPORT INFORMATION
  Report Type: Spontaneous
  Country: US (occurrence: US)
  Receive Date: 20240725
  Receipt Date: 20240725
  Transmission Date: 20241017
  Serious: Yes (Other)
  Sender: ALEMBIC
  Company Number: US-ALEMBIC PHARMACUETICALS LIMITED-2024SCAL001024

PATIENT

DRUGS (2)
  1. TERIFLUNOMIDE [Suspect]
     Active Substance: TERIFLUNOMIDE
     Indication: Multiple sclerosis
     Dosage: UNK
     Route: 065
  2. MESALAMINE [Concomitant]
     Active Substance: MESALAMINE
     Indication: Colitis ulcerative
     Route: 065

REACTIONS (11)
  - Pulmonary arterial hypertension [Recovering/Resolving]
  - Hypoxia [Recovering/Resolving]
  - Dyspnoea exertional [Recovering/Resolving]
  - Pulmonary vascular disorder [Recovering/Resolving]
  - Oxygen saturation decreased [Unknown]
  - Walking distance test abnormal [Unknown]
  - Lung diffusion test decreased [Recovering/Resolving]
  - Pulmonary arterial pressure increased [Recovering/Resolving]
  - Vascular resistance pulmonary increased [Recovering/Resolving]
  - Cardiac index decreased [Recovering/Resolving]
  - Telangiectasia [Unknown]
